FAERS Safety Report 6136042-8 (Version None)
Quarter: 2009Q1

REPORT INFORMATION
  Report Type: 
  Country: None (occurrence: None)
  Receive Date: 20090325
  Receipt Date: 20090308
  Transmission Date: 20090719
  Serious: Yes (Other)
  Sender: FDA-Public Use
  Company Number: 2007S1008978

PATIENT
  Age: 62 Year
  Sex: Female
  Weight: 106.5953 kg

DRUGS (10)
  1. PHOSPHOSODA FLAVOR NOT SPECIFIED [Suspect]
     Indication: COLONOSCOPY
     Dosage: PO
     Route: 048
     Dates: start: 20020411
  2. DIOVAN [Concomitant]
  3. CARDIZEM [Concomitant]
  4. PRAVACHOL [Concomitant]
  5. LANTUS [Concomitant]
  6. HUMALOG [Concomitant]
  7. CLONAZEPAM [Concomitant]
  8. CIPROFLOXACIN HCL [Concomitant]
  9. CALCIUM [Concomitant]
  10. ASCORBIC ACID [Concomitant]

REACTIONS (10)
  - ANXIETY [None]
  - ASTHENIA [None]
  - EMOTIONAL DISTRESS [None]
  - INJURY [None]
  - NAUSEA [None]
  - RENAL FAILURE ACUTE [None]
  - RENAL FAILURE CHRONIC [None]
  - RENAL TUBULAR NECROSIS [None]
  - TUBULOINTERSTITIAL NEPHRITIS [None]
  - VOMITING [None]
